FAERS Safety Report 13428332 (Version 1)
Quarter: 2017Q2

REPORT INFORMATION
  Report Type: Spontaneous
  Country: CN (occurrence: CN)
  Receive Date: 20170411
  Receipt Date: 20170411
  Transmission Date: 20170830
  Serious: Yes (Disabling)
  Sender: FDA-Public Use
  Company Number: CN-PFIZER INC-2017155849

PATIENT
  Age: 50 Year
  Sex: Female
  Weight: 67 kg

DRUGS (2)
  1. CEFOPERAZONE SODIUM [Suspect]
     Active Substance: CEFOPERAZONE SODIUM
     Indication: LUNG INFECTION
     Dosage: 2 G, 2X/DAY
     Route: 041
     Dates: start: 20170103, end: 20170118
  2. QING KAI LING [Suspect]
     Active Substance: HERBALS
     Indication: UPPER RESPIRATORY TRACT INFECTION
     Dosage: 2 ML, 2X/DAY
     Route: 041
     Dates: start: 20170114, end: 20170118

REACTIONS (11)
  - Renal impairment [Recovering/Resolving]
  - Blood bilirubin increased [None]
  - Liver function test abnormal [Recovering/Resolving]
  - Blood creatinine increased [None]
  - Gamma-glutamyltransferase increased [None]
  - Aspartate aminotransferase increased [None]
  - Bilirubin conjugated increased [None]
  - Blood cholinesterase increased [None]
  - Alanine aminotransferase increased [None]
  - Condition aggravated [None]
  - Upper respiratory tract infection [None]

NARRATIVE: CASE EVENT DATE: 20170119
